FAERS Safety Report 8266378-6 (Version None)
Quarter: 2012Q2

REPORT INFORMATION
  Report Type: 
  Country: None (occurrence: None)
  Receive Date: 20120406
  Receipt Date: 20120327
  Transmission Date: 20120825
  Serious: Yes (Hospitalization)
  Sender: FDA-Public Use
  Company Number: JP-ROCHE-781981

PATIENT
  Age: 29 Year
  Sex: Female
  Weight: 39 kg

DRUGS (42)
  1. MYCOPHENOLATE MOFETIL (CELLCEPT) [Suspect]
     Route: 048
     Dates: start: 20060329, end: 20060402
  2. MYCOPHENOLATE MOFETIL (CELLCEPT) [Suspect]
     Route: 048
     Dates: start: 20060408, end: 20060409
  3. MYCOPHENOLATE MOFETIL (CELLCEPT) [Suspect]
     Route: 048
     Dates: start: 20060524, end: 20060619
  4. PREDNISOLONE AND PREDNISOLONE ACETATE AND PREDNISOLONE SODIUM SUCCINAT [Suspect]
     Indication: PROPHYLAXIS AGAINST TRANSPLANT REJECTION
     Route: 048
     Dates: start: 20060403, end: 20070313
  5. PANTOSIN [Concomitant]
     Route: 048
     Dates: start: 20060804, end: 20060805
  6. ALENDRONATE SODIUM [Concomitant]
     Route: 048
     Dates: start: 20060420, end: 20071003
  7. SODIUM BICARBONATE [Concomitant]
     Indication: PROPHYLAXIS
     Dosage: DOSE FORM: GRANULATED POWDER ROUTE: OROPHARINGEAL
     Route: 050
  8. KAKKON-TO [Concomitant]
     Indication: PROPHYLAXIS
     Route: 048
  9. MYCOPHENOLATE MOFETIL (CELLCEPT) [Suspect]
     Route: 048
     Dates: start: 20060403, end: 20060407
  10. LASIX [Concomitant]
     Indication: PROPHYLAXIS
     Dosage: DOSE FORM: PERORAL AGENT
     Route: 048
     Dates: start: 20060329, end: 20060424
  11. OMEPRAZOLE [Concomitant]
     Indication: PROPHYLAXIS
     Route: 048
  12. RIKKUNSHI-TO [Concomitant]
     Dosage: DOSE FORM: PERORAL AGENT
     Route: 048
     Dates: start: 20060404, end: 20060419
  13. SULFAMETHOXAZOLE AND TRIMETHOPRIM [Concomitant]
     Indication: PROPHYLAXIS
     Route: 048
  14. ALFAROL [Concomitant]
     Indication: PROPHYLAXIS
     Route: 048
     Dates: start: 20060407, end: 20060424
  15. RIZE [Concomitant]
     Indication: PROPHYLAXIS
     Route: 048
  16. MYCOPHENOLATE MOFETIL (CELLCEPT) [Suspect]
     Route: 048
     Dates: start: 20060410, end: 20060508
  17. MYCOPHENOLATE MOFETIL (CELLCEPT) [Suspect]
     Route: 048
     Dates: start: 20070420, end: 20070702
  18. TACROLIMUS [Suspect]
     Indication: PROPHYLAXIS AGAINST TRANSPLANT REJECTION
     Route: 048
  19. ASPIRIN [Concomitant]
     Indication: PROPHYLAXIS
     Dosage: DOSE FORM: PERORAL AGENT
     Route: 048
  20. CINAL [Concomitant]
     Indication: PROPHYLAXIS
     Dosage: DOSE FORM: PERORAL AGENT
     Route: 048
  21. SOLU-MEDROL [Concomitant]
     Indication: PROPHYLAXIS AGAINST TRANSPLANT REJECTION
     Route: 042
     Dates: start: 20060327, end: 20060329
  22. ONEALFA [Concomitant]
     Indication: PROPHYLAXIS
     Route: 048
  23. NORVASC [Concomitant]
     Indication: PROPHYLAXIS
     Route: 048
  24. GLUCONSAN K [Concomitant]
     Indication: PROPHYLAXIS
     Route: 048
     Dates: start: 20060404, end: 20070726
  25. TRIAMTERENE [Concomitant]
     Indication: PROPHYLAXIS
     Route: 048
     Dates: start: 20060405, end: 20060424
  26. ENALAPRIL MALEATE [Concomitant]
  27. AMLODIPINE [Concomitant]
     Indication: PROPHYLAXIS
     Route: 048
  28. FERROUS CITRATE [Concomitant]
     Indication: PROPHYLAXIS
     Route: 048
  29. MYCOPHENOLATE MOFETIL (CELLCEPT) [Suspect]
     Indication: PROPHYLAXIS AGAINST TRANSPLANT REJECTION
     Route: 048
     Dates: start: 20060327, end: 20060328
  30. MYCOPHENOLATE MOFETIL (CELLCEPT) [Suspect]
     Route: 048
     Dates: start: 20060516, end: 20060523
  31. MYCOPHENOLATE MOFETIL (CELLCEPT) [Suspect]
     Route: 048
     Dates: start: 20060620, end: 20060927
  32. MYCOPHENOLATE MOFETIL (CELLCEPT) [Suspect]
     Route: 048
     Dates: start: 20060928, end: 20061109
  33. MYCOPHENOLATE MOFETIL (CELLCEPT) [Suspect]
     Route: 048
     Dates: start: 20061110, end: 20070419
  34. MEROPENEM [Suspect]
     Indication: UPPER RESPIRATORY TRACT INFLAMMATION
     Route: 042
     Dates: start: 20091001, end: 20091001
  35. PRAVASTATIN [Concomitant]
     Indication: PROPHYLAXIS
     Route: 048
  36. MYCOPHENOLATE MOFETIL (CELLCEPT) [Suspect]
     Route: 048
     Dates: start: 20060509, end: 20060515
  37. MYCOPHENOLATE MOFETIL (CELLCEPT) [Suspect]
     Route: 048
  38. PANTOSIN [Concomitant]
     Indication: PROPHYLAXIS
     Route: 048
     Dates: start: 20060404, end: 20060405
  39. POVIDONE IODINE [Concomitant]
     Indication: PROPHYLAXIS
     Dosage: DOSE FORM: INCLUDE ASPECT ROUTE: OROPHARINGEAL
  40. MOSAPRIDE CITRATE [Suspect]
     Indication: GASTROINTESTINAL DISORDER
     Dosage: NOTE: DOSAGE IS UNCERTAIN.
     Route: 048
     Dates: start: 20070201, end: 20070704
  41. VALGANCICLOVIR [Concomitant]
     Indication: PROPHYLAXIS
     Route: 048
     Dates: start: 20060403, end: 20070328
  42. EMPECID [Concomitant]
     Indication: PROPHYLAXIS
     Route: 048
     Dates: start: 20060403, end: 20070328

REACTIONS (13)
  - GASTROINTESTINAL DISORDER [None]
  - WHITE BLOOD CELL COUNT DECREASED [None]
  - ANAEMIA [None]
  - NASOPHARYNGITIS [None]
  - INFLUENZA [None]
  - ACUTE MYOCARDIAL INFARCTION [None]
  - OVARIAN CYST [None]
  - BRONCHITIS [None]
  - EPILEPSY [None]
  - UPPER RESPIRATORY TRACT INFLAMMATION [None]
  - DIARRHOEA [None]
  - NAUSEA [None]
  - IMMUNODEFICIENCY COMMON VARIABLE [None]
